FAERS Safety Report 4907359-7 (Version None)
Quarter: 2006Q1

REPORT INFORMATION
  Report Type: 
  Country: None (occurrence: None)
  Receive Date: 20060208
  Receipt Date: 20060208
  Transmission Date: 20060701
  Serious: Yes (Hospitalization)
  Sender: FDA-Public Use
  Company Number: None

PATIENT
  Age: 78 Year
  Sex: Male
  Weight: 87.5442 kg

DRUGS (1)
  1. GLYBURIDE [Suspect]
     Indication: DIABETES MELLITUS
     Dosage: 2.5MG BID PO
     Route: 048
     Dates: start: 20040911, end: 20060110

REACTIONS (9)
  - ASTHENIA [None]
  - DEPRESSED LEVEL OF CONSCIOUSNESS [None]
  - DIARRHOEA [None]
  - FALL [None]
  - HYPOGLYCAEMIA [None]
  - PAIN IN EXTREMITY [None]
  - SOMNOLENCE [None]
  - URINARY HESITATION [None]
  - URINARY INCONTINENCE [None]
